FAERS Safety Report 8806212 (Version 1)
Quarter: 2012Q4

REPORT INFORMATION
  Report Type: 
  Country: GB (occurrence: GB)
  Receive Date: 20120925
  Receipt Date: 20120925
  Transmission Date: 20130627
  Serious: Yes (Other)
  Sender: FDA-Public Use
  Company Number: PHFR2012GB004434

PATIENT
  Sex: Male

DRUGS (3)
  1. CLOZARIL [Suspect]
     Indication: SCHIZOPHRENIA
     Route: 048
     Dates: start: 20050429
  2. CLOZARIL [Suspect]
     Dosage: 575 mg, Daily
     Route: 048
     Dates: start: 2007, end: 201209
  3. AMISULPRIDE [Concomitant]
     Indication: PSYCHOTIC DISORDER
     Dosage: 400 mg, UNK
     Route: 048
     Dates: start: 2007

REACTIONS (2)
  - Ankylosing spondylitis [Not Recovered/Not Resolved]
  - Anaemia [Not Recovered/Not Resolved]
